FAERS Safety Report 14309160 (Version 2)
Quarter: 2017Q4

REPORT INFORMATION
  Report Type: Report from Study
  Country: US (occurrence: US)
  Receive Date: 20171220
  Receipt Date: 20171229
  Transmission Date: 20180321
  Serious: Yes (Other)
  Sender: FDA-Public Use
  Company Number: US-SAOL THERAPEUTICS-2017SAO03486

PATIENT
  Age: 47 Year
  Sex: Male

DRUGS (23)
  1. BUPIVICAINE [Suspect]
     Active Substance: BUPIVACAINE
     Dosage: 20.429 MG, \DAY MAX
     Route: 037
     Dates: start: 20160225
  2. COMPOUNDED BACLOFEN [Suspect]
     Active Substance: BACLOFEN
     Dosage: 1742.6 ?G, \DAY MAX
     Route: 037
     Dates: start: 20150112
  3. COMPOUNDED BACLOFEN [Suspect]
     Active Substance: BACLOFEN
     Dosage: 600.4 ?G, \DAY
     Route: 037
     Dates: start: 20160331
  4. BUPIVICAINE [Suspect]
     Active Substance: BUPIVACAINE
     Dosage: 8.006 MG, \DAY
     Route: 037
     Dates: start: 20160331
  5. BUPIVICAINE [Suspect]
     Active Substance: BUPIVACAINE
     Dosage: 13.316 MG, \DAY
     Dates: start: 20150702
  6. BUPIVICAINE [Suspect]
     Active Substance: BUPIVACAINE
     Dosage: 12.008 MG, \DAY
     Route: 037
     Dates: start: 20160225
  7. DECADRON [Concomitant]
     Active Substance: DEXAMETHASONE
  8. COMPOUNDED BACLOFEN [Suspect]
     Active Substance: BACLOFEN
     Dosage: 998.7 ?G, \DAY
     Route: 037
     Dates: start: 20150702
  9. COMPOUNDED BACLOFEN [Suspect]
     Active Substance: BACLOFEN
     Dosage: 1532.2 ?G, \DAY MAX
     Route: 037
     Dates: start: 20160225
  10. COMPOUNDED BACLOFEN [Suspect]
     Active Substance: BACLOFEN
     Dosage: 1646.1 ?G, \DAY MAX
     Route: 037
     Dates: start: 20141208, end: 20150112
  11. BUPIVICAINE [Suspect]
     Active Substance: BUPIVACAINE
     Dosage: 21.709 MG, \DAY MAX
     Route: 037
     Dates: start: 20150702
  12. COMPOUNDED BACLOFEN [Suspect]
     Active Substance: BACLOFEN
     Dosage: 1560.4 ?G, \DAY MAX
     Route: 037
     Dates: start: 20160225, end: 20160331
  13. BUPIVICAINE [Suspect]
     Active Substance: BUPIVACAINE
     Dosage: 21.948 MG, \DAY MAX
     Route: 037
     Dates: start: 20141208, end: 20150112
  14. BUPIVICAINE [Suspect]
     Active Substance: BUPIVACAINE
     Dosage: 20.805 MG, \DAY MAX
     Route: 037
     Dates: start: 20160225, end: 20160331
  15. BUPIVICAINE [Suspect]
     Active Substance: BUPIVACAINE
     Dosage: 18.210 MG, \DAY MAX
     Route: 037
     Dates: start: 20160331
  16. COMPOUNDED BACLOFEN [Suspect]
     Active Substance: BACLOFEN
     Dosage: 1260.1 ?G, \DAY
     Route: 037
     Dates: start: 20141208, end: 20150112
  17. COMPOUNDED BACLOFEN [Suspect]
     Active Substance: BACLOFEN
     Dosage: 1628.2 ?G, \DAY MAX
     Route: 037
     Dates: start: 20150702
  18. COMPOUNDED BACLOFEN [Suspect]
     Active Substance: BACLOFEN
     Dosage: 900.6 ?G, \DAY
     Route: 037
     Dates: start: 20160225
  19. COMPOUNDED BACLOFEN [Suspect]
     Active Substance: BACLOFEN
     Dosage: 800.0 ?G, \DAY
     Route: 037
     Dates: start: 20160225, end: 20160331
  20. COMPOUNDED BACLOFEN [Suspect]
     Active Substance: BACLOFEN
     Dosage: 1365.8 ?G, \DAY MAX
     Route: 037
     Dates: start: 20160331
  21. BUPIVICAINE [Suspect]
     Active Substance: BUPIVACAINE
     Dosage: 16.802 MG, \DAY
     Route: 037
     Dates: start: 20141208, end: 20150112
  22. BUPIVICAINE [Suspect]
     Active Substance: BUPIVACAINE
     Dosage: 10.667 MG, \DAY
     Route: 037
     Dates: start: 20160225, end: 20160331
  23. MEDICAL MARIJUANA [Concomitant]
     Active Substance: CANNABIS SATIVA SUBSP. INDICA TOP

REACTIONS (10)
  - Muscle spasms [Unknown]
  - Facial paralysis [Recovered/Resolved]
  - CSF test abnormal [Recovered/Resolved]
  - Therapeutic response decreased [Unknown]
  - Hypoaesthesia [Recovered/Resolved]
  - Device infusion issue [Recovered/Resolved]
  - Clonus [Not Recovered/Not Resolved]
  - Implant site pain [Not Recovered/Not Resolved]
  - Pain [Not Recovered/Not Resolved]
  - Implant site swelling [Recovered/Resolved]

NARRATIVE: CASE EVENT DATE: 20150112
